FAERS Safety Report 6686406-9 (Version None)
Quarter: 2010Q2

REPORT INFORMATION
  Report Type: 
  Country: None (occurrence: None)
  Receive Date: 20100413
  Receipt Date: 20090706
  Transmission Date: 20101027
  Serious: No
  Sender: FDA-Public Use
  Company Number: 2009-00441

PATIENT
  Age: 73 Year
  Sex: Female
  Weight: 51.2565 kg

DRUGS (7)
  1. ZICAM COLD REMEDY NASAL GEL [Suspect]
     Dates: start: 20070101, end: 20070101
  2. PENTASA [Concomitant]
  3. DIOVAN [Concomitant]
  4. IRON [Concomitant]
  5. CENTRUM SILVER MULTIVITAMIN [Concomitant]
  6. ... [Concomitant]
  7. ACTONEL [Concomitant]

REACTIONS (2)
  - AGEUSIA [None]
  - ANOSMIA [None]
